FAERS Safety Report 20175576 (Version 2)
Quarter: 2025Q3

REPORT INFORMATION
  Report Type: Spontaneous
  Country: KR (occurrence: KR)
  Receive Date: 20211213
  Receipt Date: 20250723
  Transmission Date: 20251020
  Serious: Yes (Disabling, Other)
  Sender: NOVARTIS
  Company Number: KR-NOVARTISPH-NVSC2021KR172134

PATIENT
  Age: 71 Year
  Sex: Male

DRUGS (1)
  1. BEOVU [Suspect]
     Active Substance: BROLUCIZUMAB-DBLL
     Indication: Neovascular age-related macular degeneration
     Dosage: 6 MG/0.05 ML, QD, LEFT EYE
     Route: 031
     Dates: start: 20210611

REACTIONS (14)
  - Blindness transient [Recovered/Resolved with Sequelae]
  - Retinal vascular occlusion [Recovered/Resolved with Sequelae]
  - Retinal vasculitis [Not Recovered/Not Resolved]
  - Visual acuity reduced [Recovering/Resolving]
  - Retinal perivascular sheathing [Unknown]
  - Detachment of retinal pigment epithelium [Unknown]
  - Vitreous haze [Unknown]
  - Subretinal fluid [Recovering/Resolving]
  - Retinal oedema [Recovering/Resolving]
  - Retinal ischaemia [Unknown]
  - Keratic precipitates [Recovering/Resolving]
  - Vitreal cells [Unknown]
  - Anterior chamber cell [Unknown]
  - Eye inflammation [Unknown]

NARRATIVE: CASE EVENT DATE: 20210719
